FAERS Safety Report 17875279 (Version 2)
Quarter: 2020Q2

REPORT INFORMATION
  Report Type: Spontaneous
  Country: US (occurrence: US)
  Receive Date: 20200609
  Receipt Date: 20200609
  Transmission Date: 20200714
  Serious: No
  Sender: FDA-Public Use
  Company Number: US-AMGEN-USA-20200507167

PATIENT
  Age: 53 Year
  Sex: Male

DRUGS (4)
  1. OTEZLA [Suspect]
     Active Substance: APREMILAST
     Indication: PSORIATIC ARTHROPATHY
     Dosage: 10 MG, 20 MG, 30 MG (STARTER PACK)
     Route: 048
     Dates: start: 20200504
  2. OTEZLA [Suspect]
     Active Substance: APREMILAST
     Indication: PSORIASIS
     Dosage: 30 MILLIGRAM
     Route: 048
     Dates: start: 202005
  3. OTEZLA [Suspect]
     Active Substance: APREMILAST
     Dosage: 30 MILLIGRAM, BID
     Route: 048
     Dates: start: 202005
  4. OTEZLA [Suspect]
     Active Substance: APREMILAST
     Dosage: 10 MG PLUS 20 MG TWICE DAILY
     Route: 048
     Dates: start: 202005

REACTIONS (3)
  - Muscle spasms [Unknown]
  - Tremor [Not Recovered/Not Resolved]
  - Insomnia [Unknown]

NARRATIVE: CASE EVENT DATE: 202005
